FAERS Safety Report 10697672 (Version 1)
Quarter: 2014Q4

REPORT INFORMATION
  Report Type: Spontaneous
  Country: US (occurrence: None)
  Receive Date: 20141223
  Receipt Date: 20141223
  Transmission Date: 20150529
  Serious: No
  Sender: FDA-Public Use
  Company Number: 1000071502

PATIENT
  Age: 81 Year
  Sex: Female

DRUGS (5)
  1. SPIRONOLACTONE. [Concomitant]
     Active Substance: SPIRONOLACTONE
  2. LINZESS [Suspect]
     Active Substance: LINACLOTIDE
     Indication: IRRITABLE BOWEL SYNDROME
     Route: 048
     Dates: start: 20141010
  3. CLONIDINE. [Concomitant]
     Active Substance: CLONIDINE
  4. LABETALOL [Concomitant]
     Active Substance: LABETALOL\LABETALOL HYDROCHLORIDE
  5. XANAX [Concomitant]
     Active Substance: ALPRAZOLAM

REACTIONS (5)
  - Abdominal pain [None]
  - Flatulence [None]
  - Feeling abnormal [None]
  - Dyspnoea [None]
  - Abdominal distension [None]

NARRATIVE: CASE EVENT DATE: 20141013
